FAERS Safety Report 7728873-5 (Version None)
Quarter: 2011Q3

REPORT INFORMATION
  Report Type: 
  Country: None (occurrence: None)
  Receive Date: 20110831
  Receipt Date: 20110831
  Transmission Date: 20111222
  Serious: No
  Sender: FDA-Public Use
  Company Number: None

PATIENT
  Sex: Male
  Weight: 108 kg

DRUGS (7)
  1. CISPLATIN [Suspect]
     Dosage: 170 MG
     Dates: start: 20110811, end: 20110811
  2. ERBITUX [Suspect]
     Dosage: 1476 MG
     Dates: start: 20110811, end: 20110818
  3. SIMVASTATIN [Concomitant]
  4. PACLITAXEL [Suspect]
     Dosage: 408 MG
     Dates: start: 20110811, end: 20110818
  5. HYDROCODONE [Concomitant]
  6. LISINOPRIL [Concomitant]
  7. MOTRIN [Concomitant]

REACTIONS (2)
  - THROMBOSIS IN DEVICE [None]
  - CHEST PAIN [None]
